FAERS Safety Report 4666105-5 (Version None)
Quarter: 2005Q2

REPORT INFORMATION
  Report Type: 
  Country: None (occurrence: None)
  Receive Date: 20050519
  Receipt Date: 20050517
  Transmission Date: 20051028
  Serious: Yes (Hospitalization, Congenital Anomaly)
  Sender: FDA-Public Use
  Company Number: FR-GLAXOSMITHKLINE-B0381163A

PATIENT
  Sex: Male

DRUGS (6)
  1. CLAMOXYL [Suspect]
     Indication: URINARY TRACT INFECTION
     Dosage: 1G THREE TIMES PER DAY
     Dates: start: 20040612, end: 20040619
  2. ZOVIRAX [Suspect]
     Indication: VARICELLA
     Dosage: 250MG THREE TIMES PER DAY
     Dates: start: 20040612, end: 20040613
  3. ZELITREX [Suspect]
     Indication: VARICELLA
     Dosage: 500MG TWICE PER DAY
     Dates: start: 20040614
  4. POLARAMINE [Suspect]
     Indication: VARICELLA
     Dosage: 2MG TWICE PER DAY
     Dates: start: 20040612
  5. BRICANYL [Suspect]
     Indication: ASTHMA
     Dates: start: 20040415
  6. DIFFU K [Concomitant]

REACTIONS (3)
  - DRUG ADMINISTRATION ERROR [None]
  - DRUG EXPOSURE DURING PREGNANCY [None]
  - RENAL ATROPHY [None]
